FAERS Safety Report 5175346-2 (Version None)
Quarter: 2006Q4

REPORT INFORMATION
  Report Type: 
  Country: None (occurrence: None)
  Receive Date: 20061212
  Receipt Date: 20061212
  Transmission Date: 20070319
  Serious: Yes (Life-Threatening, Hospitalization)
  Sender: FDA-Public Use
  Company Number: None

PATIENT
  Age: 61 Year
  Sex: Female
  Weight: 77.1115 kg

DRUGS (1)
  1. PLAVIX [Suspect]
     Dates: start: 20041104, end: 20050901

REACTIONS (2)
  - INTESTINAL OBSTRUCTION [None]
  - ULCER [None]
